FAERS Safety Report 10401494 (Version 3)
Quarter: 2014Q3

REPORT INFORMATION
  Report Type: Spontaneous
  Country: CA (occurrence: None)
  Receive Date: 20140820
  Receipt Date: 20140929
  Transmission Date: 20150326
  Serious: Yes (Death, Other)
  Sender: FDA-Public Use
  Company Number: ADR-2014-01456

PATIENT

DRUGS (4)
  1. LIORESAL [Suspect]
     Active Substance: BACLOFEN
  2. LANSOPRAZOLE. [Suspect]
     Active Substance: LANSOPRAZOLE
     Route: 048
  3. ARTANE [Suspect]
     Active Substance: TRIHEXYPHENIDYL HYDROCHLORIDE
     Route: 048
  4. LOSEC [Suspect]
     Active Substance: OMEPRAZOLE

REACTIONS (3)
  - Death [None]
  - Respiratory failure [None]
  - Pneumonia [None]
